FAERS Safety Report 6838610-4 (Version None)
Quarter: 2010Q3

REPORT INFORMATION
  Report Type: 
  Country: None (occurrence: None)
  Receive Date: 20100709
  Receipt Date: 20100615
  Transmission Date: 20110219
  Serious: Yes (Other)
  Sender: FDA-Public Use
  Company Number: 013729

PATIENT
  Age: 63 Year
  Sex: Female

DRUGS (9)
  1. VIMPAT [Suspect]
     Indication: EPILEPSY
     Dosage: SEE IMAGE
     Dates: start: 20091101, end: 20100101
  2. VIMPAT [Suspect]
     Indication: EPILEPSY
     Dosage: SEE IMAGE
     Dates: start: 20100101, end: 20100503
  3. VIMPAT [Suspect]
     Indication: EPILEPSY
     Dosage: SEE IMAGE
     Dates: start: 20100503, end: 20100510
  4. VIMPAT [Suspect]
     Indication: EPILEPSY
     Dosage: SEE IMAGE
     Dates: start: 20100510, end: 20100518
  5. VIMPAT [Suspect]
     Indication: EPILEPSY
     Dosage: SEE IMAGE
     Dates: start: 20100518, end: 20100525
  6. VIMPAT [Suspect]
     Indication: EPILEPSY
     Dosage: SEE IMAGE
     Dates: start: 20100525
  7. LAMOTRIGINE [Concomitant]
  8. GABAPENTINE [Concomitant]
  9. VALPROATE SODIUM [Concomitant]

REACTIONS (6)
  - BALANCE DISORDER [None]
  - CHEST PAIN [None]
  - CONDITION AGGRAVATED [None]
  - CONVULSION [None]
  - FLANK PAIN [None]
  - PAIN IN EXTREMITY [None]
